FAERS Safety Report 13855828 (Version 1)
Quarter: 2017Q3

REPORT INFORMATION
  Report Type: Spontaneous
  Country: US (occurrence: US)
  Receive Date: 20170810
  Receipt Date: 20170810
  Transmission Date: 20171127
  Serious: No
  Sender: FDA-Public Use
  Company Number: US-VIFOR (INTERNATIONAL) INC.-VIT-2017-00352

PATIENT
  Sex: Male

DRUGS (4)
  1. VELTASSA [Suspect]
     Active Substance: PATIROMER
     Indication: BLOOD POTASSIUM
     Route: 065
     Dates: start: 20161207
  2. VELTASSA [Suspect]
     Active Substance: PATIROMER
     Dates: start: 201612
  3. KEYAXALATE [Concomitant]
  4. VELTASSA [Suspect]
     Active Substance: PATIROMER
     Route: 065

REACTIONS (2)
  - Drug ineffective [Recovered/Resolved]
  - Inappropriate schedule of drug administration [Not Recovered/Not Resolved]
